FAERS Safety Report 9838296 (Version 1)
Quarter: 2014Q1

REPORT INFORMATION
  Report Type: Spontaneous
  Country: US (occurrence: US)
  Receive Date: 20140123
  Receipt Date: 20140123
  Transmission Date: 20141002
  Serious: Yes (Death, Other)
  Sender: FDA-Public Use
  Company Number: US-GILEAD-2014-0092755

PATIENT
  Age: 54 Year
  Sex: Female

DRUGS (14)
  1. LETAIRIS [Suspect]
     Indication: PULMONARY HYPERTENSION
     Dosage: 5 MG, QD
     Route: 048
     Dates: start: 20131026
  2. HUMULIN R [Concomitant]
  3. GABAPENTIN [Concomitant]
  4. LASIX                              /00032601/ [Concomitant]
  5. CELEXA                             /00582602/ [Concomitant]
  6. JANUVIA [Concomitant]
  7. METHOTREXATE [Concomitant]
  8. METOCLOPRAMIDE HCL [Concomitant]
  9. METOPROLOL TARTRATE [Concomitant]
  10. NOVOLOG [Concomitant]
  11. PREDNISONE [Concomitant]
  12. TRAMADOL [Concomitant]
  13. PROMETHAZINE                       /00033002/ [Concomitant]
  14. REMERON [Concomitant]

REACTIONS (1)
  - Death [Fatal]
